FAERS Safety Report 4515455-1 (Version None)
Quarter: 2004Q4

REPORT INFORMATION
  Report Type: 
  Country: None (occurrence: None)
  Receive Date: 20041126
  Receipt Date: 20041116
  Transmission Date: 20050328
  Serious: Yes (Hospitalization, Other)
  Sender: FDA-Public Use
  Company Number: 2004-00821

PATIENT
  Age: 74 Year
  Sex: Male
  Weight: 63.5 kg

DRUGS (8)
  1. VELCADE [Suspect]
     Indication: MULTIPLE MYELOMA
     Dosage: 1.00 MG, 2/WEEK, INTRAVENOUS
     Route: 042
     Dates: start: 20040701, end: 20041102
  2. VELCADE [Suspect]
     Indication: MULTIPLE MYELOMA
     Dosage: 0.07 MG, 1/WEEK, INTRAVENOUS
     Route: 042
     Dates: start: 20041109
  3. DECADRON [Concomitant]
  4. ATENOLOL [Concomitant]
  5. CARDURA [Concomitant]
  6. PROTONIX [Concomitant]
  7. VITAMIN C (ASCORBIC ACID) [Concomitant]
  8. INSULIN [Concomitant]

REACTIONS (10)
  - BLOOD PRESSURE INCREASED [None]
  - CHROMATURIA [None]
  - DISEASE PROGRESSION [None]
  - HAEMOGLOBIN DECREASED [None]
  - HYPERCALCAEMIA [None]
  - RED BLOOD CELL COUNT DECREASED [None]
  - THERAPY NON-RESPONDER [None]
  - THROMBOCYTOPENIA [None]
  - URINARY BLADDER HAEMORRHAGE [None]
  - URINARY RETENTION [None]
